FAERS Safety Report 13929280 (Version 1)
Quarter: 2017Q3

REPORT INFORMATION
  Report Type: Spontaneous
  Country: US (occurrence: US)
  Receive Date: 20170901
  Receipt Date: 20170901
  Transmission Date: 20171127
  Serious: Yes (Other)
  Sender: FDA-Public Use
  Company Number: US-APOTEX-2017AP017304

PATIENT
  Age: 37 Year
  Sex: Female

DRUGS (2)
  1. OLANZAPINE. [Suspect]
     Active Substance: OLANZAPINE
     Indication: ANOREXIA NERVOSA
     Dosage: UNK
     Route: 065
  2. OLANZAPINE. [Suspect]
     Active Substance: OLANZAPINE
     Indication: WEIGHT DECREASED

REACTIONS (3)
  - Acute hepatic failure [Recovering/Resolving]
  - Drug-induced liver injury [Recovering/Resolving]
  - Off label use [Unknown]
